FAERS Safety Report 14794193 (Version 1)
Quarter: 2018Q2

REPORT INFORMATION
  Report Type: Spontaneous
  Country: US (occurrence: US)
  Receive Date: 20180423
  Receipt Date: 20180423
  Transmission Date: 20180711
  Serious: Yes (Hospitalization)
  Sender: FDA-Public Use
  Company Number: PHHY2018US064550

PATIENT
  Age: 15 Year
  Sex: Male

DRUGS (2)
  1. METHOTREXATE. [Suspect]
     Active Substance: METHOTREXATE
     Indication: ACUTE LYMPHOCYTIC LEUKAEMIA
     Dosage: 5 G/M2
     Route: 041
  2. METHOTREXATE. [Suspect]
     Active Substance: METHOTREXATE
     Dosage: UNK
     Route: 037

REACTIONS (6)
  - Facial paralysis [Recovering/Resolving]
  - Hemiparesis [Recovering/Resolving]
  - Pallor [Recovering/Resolving]
  - Anxiety [Recovering/Resolving]
  - Neurotoxicity [Recovering/Resolving]
  - Dysarthria [Recovering/Resolving]
